FAERS Safety Report 6129903-7 (Version None)
Quarter: 2009Q1

REPORT INFORMATION
  Report Type: 
  Country: None (occurrence: None)
  Receive Date: 20090323
  Receipt Date: 20090323
  Transmission Date: 20090719
  Serious: Yes (Other)
  Sender: FDA-Public Use
  Company Number: None

PATIENT
  Age: 59 Year
  Sex: Female
  Weight: 88.4514 kg

DRUGS (1)
  1. MACROBID [Suspect]
     Indication: CYSTITIS
     Dosage: ONE CAPSULE DAILY
     Dates: start: 20090310, end: 20090310

REACTIONS (3)
  - CHILLS [None]
  - HEADACHE [None]
  - PYREXIA [None]
